FAERS Safety Report 7641613-3 (Version None)
Quarter: 2011Q3

REPORT INFORMATION
  Report Type: 
  Country: None (occurrence: None)
  Receive Date: 20110728
  Receipt Date: 20110708
  Transmission Date: 20111222
  Serious: Yes (Death)
  Sender: FDA-Public Use
  Company Number: US-GLAXOSMITHKLINE-A0726141A

PATIENT
  Age: 55 Year
  Sex: Male
  Weight: 102.7 kg

DRUGS (7)
  1. GLUCOPHAGE [Concomitant]
     Indication: TYPE 2 DIABETES MELLITUS
     Dosage: 500MG TWICE PER DAY
     Dates: start: 19990101, end: 20060404
  2. PLAVIX [Concomitant]
     Indication: THROMBOSIS PROPHYLAXIS
  3. METFORMIN HCL [Concomitant]
     Indication: DIABETES MELLITUS
     Dosage: 500MG THREE TIMES PER DAY
     Dates: start: 19990101, end: 20060404
  4. GLUCOTROL [Concomitant]
     Indication: DIABETES MELLITUS
     Dosage: 10MG TWICE PER DAY
     Dates: start: 19990101, end: 20060404
  5. AVANDIA [Suspect]
     Indication: TYPE 2 DIABETES MELLITUS
     Dosage: 8MG PER DAY
     Route: 048
     Dates: start: 20011207, end: 20060404
  6. LISINOPRIL [Concomitant]
     Indication: BLOOD PRESSURE
  7. NIACIN [Concomitant]
     Indication: BLOOD TRIGLYCERIDES INCREASED

REACTIONS (3)
  - HEART INJURY [None]
  - MYOCARDIAL INFARCTION [None]
  - CARDIAC DEATH [None]
